FAERS Safety Report 11822890 (Version 1)
Quarter: 2015Q4

REPORT INFORMATION
  Report Type: Spontaneous
  Country: US (occurrence: US)
  Receive Date: 20151210
  Receipt Date: 20151210
  Transmission Date: 20160305
  Serious: No
  Sender: FDA-Public Use
  Company Number: US-JNJFOC-20150621472

PATIENT
  Sex: Female

DRUGS (10)
  1. GAS-X [Concomitant]
     Active Substance: DIMETHICONE
  2. PREVAGEN [Concomitant]
     Active Substance: DIETARY SUPPLEMENT
  3. OSTEO BI-FLEX [Concomitant]
     Active Substance: CHONDROITIN SULFATE A\GLUCOSAMINE
  4. ACUVAIL [Concomitant]
     Active Substance: KETOROLAC TROMETHAMINE
  5. CLINDAMYCIN [Concomitant]
     Active Substance: CLINDAMYCIN\CLINDAMYCIN PHOSPHATE
     Route: 061
  6. HYDROCHLOROTHIAZIDE. [Concomitant]
     Active Substance: HYDROCHLOROTHIAZIDE
  7. NIFEDICAL XL [Concomitant]
     Active Substance: NIFEDIPINE
  8. POTASSIUM CHLORIDE. [Concomitant]
     Active Substance: POTASSIUM CHLORIDE
  9. IMBRUVICA [Suspect]
     Active Substance: IBRUTINIB
     Indication: LYMPHOMA
     Route: 048
     Dates: start: 20140104
  10. LABETALOL [Concomitant]
     Active Substance: LABETALOL\LABETALOL HYDROCHLORIDE

REACTIONS (3)
  - Tooth disorder [Unknown]
  - Adverse drug reaction [Unknown]
  - Bladder disorder [Unknown]
